FAERS Safety Report 18940151 (Version 2)
Quarter: 2021Q1

REPORT INFORMATION
  Report Type: Report from Study
  Country: CA (occurrence: CA)
  Receive Date: 20210224
  Receipt Date: 20210308
  Transmission Date: 20210420
  Serious: Yes (Other)
  Sender: FDA-Public Use
  Company Number: CA-NALPROPION PHARMACEUTICALS INC.-2020-011407

PATIENT

DRUGS (5)
  1. CONTRAVE [Suspect]
     Active Substance: BUPROPION HYDROCHLORIDE\NALTREXONE HYDROCHLORIDE
     Dosage: 90MG/8MG; TWICE DAILY (1 DOSAGE FORMS, 1 IN 12HR)
     Route: 048
     Dates: start: 20200925, end: 20201004
  2. IRBESARTAN. [Concomitant]
     Active Substance: IRBESARTAN
     Indication: HYPERTENSION
     Dosage: 300 MG, 1 IN 1 D
     Route: 048
  3. CONTRAVE [Suspect]
     Active Substance: BUPROPION HYDROCHLORIDE\NALTREXONE HYDROCHLORIDE
     Dosage: 90MG/8MG; 2 TABLETS IN MORNING, 1 TABLET IN EVENING
     Route: 048
     Dates: start: 20201005, end: 202010
  4. CONTRAVE [Suspect]
     Active Substance: BUPROPION HYDROCHLORIDE\NALTREXONE HYDROCHLORIDE
     Indication: WEIGHT CONTROL
     Dosage: 90MG/8MG; ONCE DAILY (1 DOSAGE FORMS, 1 IN 1 D)
     Route: 048
     Dates: start: 20200918, end: 20200924
  5. CONTRAVE [Suspect]
     Active Substance: BUPROPION HYDROCHLORIDE\NALTREXONE HYDROCHLORIDE
     Dosage: 90MG/8MG; 2 TABLETS TWICE A DAY (APPROXIMATELY ON 12/OCT/2020)
     Route: 048
     Dates: start: 202010

REACTIONS (4)
  - Tinnitus [Unknown]
  - Nausea [Recovered/Resolved]
  - Blood pressure increased [Not Recovered/Not Resolved]
  - Atrial fibrillation [Unknown]

NARRATIVE: CASE EVENT DATE: 2020
